FAERS Safety Report 6007773-5 (Version None)
Quarter: 2008Q4

REPORT INFORMATION
  Report Type: 
  Country: None (occurrence: None)
  Receive Date: 20081217
  Receipt Date: 20080603
  Transmission Date: 20090506
  Serious: No
  Sender: FDA-Public Use
  Company Number: US-ASTRAZENECA-2008UW11223

PATIENT
  Age: 79 Year
  Sex: Male
  Weight: 127 kg

DRUGS (3)
  1. CRESTOR [Suspect]
     Indication: BLOOD CHOLESTEROL
     Route: 048
     Dates: start: 20080501
  2. ACTOS [Concomitant]
  3. METOPROLOL TARTRATE [Concomitant]

REACTIONS (1)
  - DYSPNOEA [None]
